FAERS Safety Report 9825417 (Version 1)
Quarter: 2014Q1

REPORT INFORMATION
  Report Type: Spontaneous
  Country: US (occurrence: None)
  Receive Date: 20140115
  Receipt Date: 20140115
  Transmission Date: 20141002
  Serious: No
  Sender: FDA-Public Use
  Company Number: None

PATIENT
  Sex: Female
  Weight: 52 kg

DRUGS (5)
  1. ADO-TRASTUZUMAB EMTANSINE [Suspect]
     Indication: HER-2 POSITIVE BREAST CANCER
     Route: 042
     Dates: start: 20120917, end: 20131024
  2. VITAMIN D3 [Concomitant]
  3. VYTORIN [Concomitant]
  4. FISH OIL [Concomitant]
  5. MYRBETRIS [Concomitant]

REACTIONS (3)
  - Portal hypertension [None]
  - Splenorenal shunt [None]
  - Varices oesophageal [None]
